FAERS Safety Report 5011839-6 (Version None)
Quarter: 2006Q2

REPORT INFORMATION
  Report Type: 
  Country: None (occurrence: None)
  Receive Date: 20060526
  Receipt Date: 20031021
  Transmission Date: 20061013
  Serious: Yes (Hospitalization)
  Sender: FDA-Public Use
  Company Number: JP-ABBOTT-03P-087-0238240-00

PATIENT
  Sex: Male

DRUGS (8)
  1. KALETRA [Suspect]
     Indication: HIV INFECTION
     Route: 048
     Dates: start: 20021220, end: 20040617
  2. KALETRA [Suspect]
     Route: 048
     Dates: start: 20040710
  3. ZIDOVUDINE [Suspect]
     Indication: HIV INFECTION
     Route: 048
     Dates: start: 20021220, end: 20040617
  4. ZIDOVUDINE [Suspect]
     Route: 048
     Dates: start: 20040710
  5. LAMIVUDINE [Suspect]
     Indication: HIV INFECTION
     Route: 048
     Dates: start: 20021220, end: 20040617
  6. LAMIVUDINE [Suspect]
     Route: 048
     Dates: start: 20040710
  7. BACTRIM [Concomitant]
     Indication: ANTIBIOTIC PROPHYLAXIS
     Route: 048
     Dates: start: 20021220
  8. ALLOPURINOL [Concomitant]
     Indication: HYPERURICAEMIA
     Route: 048
     Dates: start: 20030214

REACTIONS (10)
  - ANAEMIA MACROCYTIC [None]
  - BLOOD ALKALINE PHOSPHATASE INCREASED [None]
  - HYPERLACTACIDAEMIA [None]
  - HYPERTHYROIDISM [None]
  - HYPERTRIGLYCERIDAEMIA [None]
  - HYPERURICAEMIA [None]
  - HYPOKALAEMIA [None]
  - LIVER DISORDER [None]
  - PARALYSIS [None]
  - PLATELET COUNT DECREASED [None]
